FAERS Safety Report 12383189 (Version 3)
Quarter: 2016Q3

REPORT INFORMATION
  Report Type: Spontaneous
  Country: US (occurrence: US)
  Receive Date: 20160518
  Receipt Date: 20160818
  Transmission Date: 20161109
  Serious: No
  Sender: FDA-Public Use
  Company Number: US-PFIZER INC-2016255359

PATIENT
  Age: 53 Year
  Sex: Female
  Weight: 121 kg

DRUGS (3)
  1. IBRANCE [Suspect]
     Active Substance: PALBOCICLIB
     Dosage: 100 MG, 1X/DAY
     Dates: start: 201604
  2. FEMARA [Suspect]
     Active Substance: LETROZOLE
     Dosage: UNK
  3. IBRANCE [Suspect]
     Active Substance: PALBOCICLIB
     Indication: BREAST CANCER STAGE IV
     Dosage: 100 MG, 1X/DAY
     Route: 048
     Dates: start: 20160501

REACTIONS (8)
  - Blood glucose increased [Unknown]
  - Abdominal distension [Unknown]
  - Thirst [Unknown]
  - Insomnia [Unknown]
  - Bone pain [Unknown]
  - Headache [Recovered/Resolved]
  - Fatigue [Unknown]
  - Hyperhidrosis [Unknown]

NARRATIVE: CASE EVENT DATE: 201605
